FAERS Safety Report 18540797 (Version 3)
Quarter: 2021Q3

REPORT INFORMATION
  Report Type: Spontaneous
  Country: JP (occurrence: JP)
  Receive Date: 20201124
  Receipt Date: 20210707
  Transmission Date: 20211014
  Serious: Yes (Other)
  Sender: FDA-Public Use
  Company Number: JP-OTSUKA-2020_029000

PATIENT
  Age: 9 Year
  Sex: Female
  Weight: 23.2 kg

DRUGS (15)
  1. LUVOX [Suspect]
     Active Substance: FLUVOXAMINE MALEATE
     Indication: OBSESSIVE-COMPULSIVE DISORDER
     Dosage: 3 T/DAY, UNK
     Route: 048
     Dates: start: 20200820, end: 20200910
  2. LUVOX [Suspect]
     Active Substance: FLUVOXAMINE MALEATE
     Dosage: 3 T, QD EVENING
     Dates: start: 20200911, end: 20201022
  3. BIO?THREE [Concomitant]
     Active Substance: HERBALS
     Indication: PRODUCT USED FOR UNKNOWN INDICATION
     Dosage: 0.25 G, TID (AFTER EVERY MEAL)
     Route: 065
     Dates: start: 20201016
  4. LUVOX [Suspect]
     Active Substance: FLUVOXAMINE MALEATE
     Dosage: 2 T, QD EVENING
     Route: 048
     Dates: start: 20200713, end: 20200819
  5. KEFRAL [Suspect]
     Active Substance: CEFACLOR
     Indication: PROPHYLAXIS URINARY TRACT INFECTION
     Dosage: 200 MG, QD (AFTER DINNER)
     Route: 048
     Dates: start: 20201016
  6. LUVOX [Suspect]
     Active Substance: FLUVOXAMINE MALEATE
     Dosage: 1 T, QD EVENING
     Route: 048
     Dates: start: 20200629, end: 20200712
  7. LUVOX [Suspect]
     Active Substance: FLUVOXAMINE MALEATE
     Dosage: 2 T/DAY, UNK
     Route: 048
     Dates: start: 20201023
  8. POLLAKISU [Suspect]
     Active Substance: OXYBUTYNIN CHLORIDE
     Indication: PRODUCT USED FOR UNKNOWN INDICATION
     Dosage: 2.5 TABLETS/DAY, TID (AFTER EVERY MEAL)
     Route: 048
     Dates: start: 20201016
  9. LACTOSE [Concomitant]
     Active Substance: LACTOSE
     Indication: PRODUCT USED FOR UNKNOWN INDICATION
     Dosage: 0.1 G, QD (AFTER DINNER)
     Route: 048
     Dates: start: 20201009
  10. ABILIFY [Suspect]
     Active Substance: ARIPIPRAZOLE
     Indication: IRRITABILITY
     Dosage: 1 MG, BID
     Route: 048
     Dates: start: 20200911, end: 20201008
  11. ABILIFY [Suspect]
     Active Substance: ARIPIPRAZOLE
     Indication: AUTISM SPECTRUM DISORDER
     Dosage: 2 MG, BID (AFTER BREAKFAST AND DINNER)
     Route: 065
     Dates: start: 20201009
  12. POLLAKISU [Suspect]
     Active Substance: OXYBUTYNIN CHLORIDE
     Dosage: 2.5 TABLETS/DAY, BID
     Route: 048
  13. ABILIFY [Suspect]
     Active Substance: ARIPIPRAZOLE
     Indication: IRRITABILITY
  14. ABILIFY [Suspect]
     Active Substance: ARIPIPRAZOLE
     Indication: AUTISM SPECTRUM DISORDER
     Dosage: 4 MG/DAY, UNK
     Route: 048
     Dates: start: 20201009, end: 20201112
  15. ABILIFY [Suspect]
     Active Substance: ARIPIPRAZOLE
     Dosage: 2 MG/DAY, UNK
     Dates: start: 20201113, end: 20201129

REACTIONS (3)
  - Hydronephrosis [Recovered/Resolved]
  - Irritability [Unknown]
  - Abdominal pain [Unknown]

NARRATIVE: CASE EVENT DATE: 20201023
